FAERS Safety Report 10930436 (Version 2)
Quarter: 2015Q2

REPORT INFORMATION
  Report Type: Spontaneous
  Country: JP (occurrence: JP)
  Receive Date: 20150319
  Receipt Date: 20150407
  Transmission Date: 20150821
  Serious: Yes (Life-Threatening, Disabling, Other)
  Sender: FDA-Public Use
  Company Number: JP-GLAXOSMITHKLINE-JP2015GSK009009

PATIENT
  Age: 75 Year
  Sex: Female
  Weight: 34 kg

DRUGS (1)
  1. HYCAMTIN [Suspect]
     Active Substance: TOPOTECAN HYDROCHLORIDE
     Indication: MALIGNANT PERITONEAL NEOPLASM
     Dosage: UNK
     Route: 042
     Dates: start: 20141117, end: 20141121

REACTIONS (2)
  - Sepsis [Recovering/Resolving]
  - Cellulitis orbital [Recovered/Resolved with Sequelae]

NARRATIVE: CASE EVENT DATE: 20141204
